FAERS Safety Report 10342534 (Version 1)
Quarter: 2014Q3

REPORT INFORMATION
  Report Type: Report from Study
  Country: HK (occurrence: HK)
  Receive Date: 20140725
  Receipt Date: 20140725
  Transmission Date: 20150326
  Serious: Yes (Death, Life-Threatening, Hospitalization, Other)
  Sender: FDA-Public Use
  Company Number: PHHY2014HK089463

PATIENT
  Age: 57 Year
  Sex: Male

DRUGS (58)
  1. ADALAT [Concomitant]
     Active Substance: NIFEDIPINE
     Indication: CORONARY ARTERY DISEASE
     Route: 048
  2. NEXIUM [Concomitant]
     Active Substance: ESOMEPRAZOLE MAGNESIUM
     Dosage: 40 MG, UNK
     Route: 042
     Dates: start: 20140417, end: 20140419
  3. KYTRIL [Concomitant]
     Active Substance: GRANISETRON HYDROCHLORIDE
     Dosage: 1 MG, UNK
     Route: 042
     Dates: start: 20140502, end: 20140510
  4. LACTULOSE. [Concomitant]
     Active Substance: LACTULOSE
     Indication: CONSTIPATION
     Dosage: 10 ML, UNK
     Route: 048
     Dates: start: 20140309
  5. AUGMENTIN [Concomitant]
     Active Substance: AMOXICILLIN\CLAVULANATE POTASSIUM
     Dosage: 1.2 G, UNK
     Route: 042
     Dates: start: 20140502, end: 20140510
  6. FOLINIC ACID [Suspect]
     Active Substance: LEUCOVORIN
     Dosage: 630 MG, UNK
     Route: 042
     Dates: start: 20140304, end: 20140319
  7. NEXIUM [Concomitant]
     Active Substance: ESOMEPRAZOLE MAGNESIUM
     Dosage: 40 MG, UNK
     Route: 042
     Dates: start: 20140504, end: 20140510
  8. TRAMADOL [Concomitant]
     Active Substance: TRAMADOL
     Indication: BACK PAIN
  9. POTASSIUM CHLORIDE. [Concomitant]
     Active Substance: POTASSIUM CHLORIDE
     Dosage: 10 ML, UNK
     Route: 042
     Dates: start: 20140505, end: 20140507
  10. PANTOPRAZOLE [Concomitant]
     Active Substance: PANTOPRAZOLE SODIUM
     Dosage: 40 MG, UNK
     Route: 042
     Dates: start: 20140428, end: 20140428
  11. PARACETAMOL [Concomitant]
     Active Substance: ACETAMINOPHEN
     Indication: PAIN
     Dosage: 250 MG, UNK
     Route: 048
     Dates: start: 20140509, end: 20140510
  12. ROSUVASTATIN [Concomitant]
     Active Substance: ROSUVASTATIN
     Indication: HYPERLIPIDAEMIA
     Dosage: 10 MG, UNK
     Route: 048
     Dates: start: 20140410, end: 20140430
  13. DORMICUM//MIDAZOLAM HYDROCHLORIDE [Concomitant]
     Indication: CONVULSION
     Dosage: 3 MG, UNK
     Route: 042
     Dates: start: 20140510
  14. 5-FLUOROURACIL [Suspect]
     Active Substance: FLUOROURACIL
     Dosage: 296 MG, 1 IN 14 D
     Route: 040
     Dates: start: 20140304, end: 20140415
  15. IMODIUM [Concomitant]
     Active Substance: LOPERAMIDE HYDROCHLORIDE
     Indication: DIARRHOEA
     Dosage: 2 MG, UNK
     Route: 048
  16. HYPROMELLOSE [Concomitant]
     Active Substance: HYPROMELLOSES
     Indication: EYE IRRITATION
     Dosage: 10 ML, UNK
     Route: 031
     Dates: start: 20140509
  17. NEXIUM [Concomitant]
     Active Substance: ESOMEPRAZOLE MAGNESIUM
     Dosage: 40 MG, UNK
     Route: 042
     Dates: start: 20140501, end: 20140503
  18. NEXIUM [Concomitant]
     Active Substance: ESOMEPRAZOLE MAGNESIUM
     Dosage: 40 MG, UNK
     Route: 042
     Dates: start: 20140416, end: 20140417
  19. MAXOLON [Concomitant]
     Active Substance: METOCLOPRAMIDE HYDROCHLORIDE
     Dosage: 30 MG, UNK
     Route: 042
     Dates: start: 20140320, end: 20140322
  20. DEXAMETHASONE. [Concomitant]
     Active Substance: DEXAMETHASONE
     Indication: NAUSEA
     Dosage: 8 MG, UNK
     Route: 042
     Dates: start: 20140304, end: 20140304
  21. ZOFRAN [Concomitant]
     Active Substance: ONDANSETRON HYDROCHLORIDE
     Indication: NAUSEA
     Dosage: 8 MG, UNK
     Route: 042
     Dates: start: 20140304, end: 20140304
  22. PANTOPRAZOLE [Concomitant]
     Active Substance: PANTOPRAZOLE SODIUM
     Dosage: 40 MG, UNK
     Dates: start: 20140429, end: 20140501
  23. KYTRIL [Concomitant]
     Active Substance: GRANISETRON HYDROCHLORIDE
     Indication: NAUSEA
     Dosage: 1 MG, UNK
     Route: 048
     Dates: start: 20140410, end: 20140428
  24. KYTRIL [Concomitant]
     Active Substance: GRANISETRON HYDROCHLORIDE
     Indication: VOMITING
     Dosage: 1 MG, UNK
     Route: 048
     Dates: start: 20140429, end: 20140505
  25. FUROSEMIDE. [Concomitant]
     Active Substance: FUROSEMIDE
     Indication: OEDEMA
     Dosage: 20 MG, UNK
     Route: 042
     Dates: start: 20140501, end: 20140509
  26. CRESTOR [Concomitant]
     Active Substance: ROSUVASTATIN CALCIUM
     Indication: CORONARY ARTERY DISEASE
     Dosage: 5 MG, UNK
     Route: 048
  27. MAXOLON [Concomitant]
     Active Substance: METOCLOPRAMIDE HYDROCHLORIDE
     Indication: VOMITING
     Dosage: 10 MG, UNK
     Route: 042
     Dates: start: 20140402, end: 20140402
  28. THYMOL [Concomitant]
     Active Substance: THYMOL
     Indication: STOMATITIS
     Dosage: 15 ML, UNK
     Route: 061
     Dates: start: 20140306, end: 20140319
  29. THYMOL [Concomitant]
     Active Substance: THYMOL
     Dosage: 10 ML, UNK
     Route: 061
     Dates: start: 20140416
  30. TRANEXAMIC ACID. [Concomitant]
     Active Substance: TRANEXAMIC ACID
     Indication: GASTROINTESTINAL HAEMORRHAGE
     Dosage: 1500 MG, UNK
     Route: 048
     Dates: start: 20140419
  31. PANTOPRAZOLE [Concomitant]
     Active Substance: PANTOPRAZOLE SODIUM
     Indication: GASTROINTESTINAL HAEMORRHAGE
     Dosage: 40 MG, UNK
     Route: 048
     Dates: start: 20140419
  32. ALBUMEX [Concomitant]
     Dosage: 50 ML, UNK
     Route: 042
     Dates: start: 20140502, end: 20140503
  33. OXALIPLATIN. [Suspect]
     Active Substance: OXALIPLATIN
     Dosage: 96 MG,1 IN 14 D
     Route: 042
     Dates: end: 20140415
  34. 5-FLUOROURACIL [Suspect]
     Active Substance: FLUOROURACIL
     Dosage: 2960 MG, UNK
     Route: 041
     Dates: end: 20140415
  35. NEXIUM [Concomitant]
     Active Substance: ESOMEPRAZOLE MAGNESIUM
     Indication: GASTROOESOPHAGEAL REFLUX DISEASE
     Dosage: 40 MG, UNK
     Route: 048
     Dates: start: 20140429, end: 20140501
  36. NEXIUM [Concomitant]
     Active Substance: ESOMEPRAZOLE MAGNESIUM
     Dosage: 40 MG, UNK
     Route: 048
     Dates: start: 20140504, end: 20140510
  37. ACERTIL [Concomitant]
     Indication: CORONARY ARTERY DISEASE
     Dosage: 2 MG, UNK
     Route: 048
  38. LARGACTIL [Concomitant]
     Active Substance: CHLORPROMAZINE
     Indication: HICCUPS
     Dosage: 25 MG, UNK
     Route: 048
     Dates: start: 20140318
  39. POTASSIUM CHLORIDE. [Concomitant]
     Active Substance: POTASSIUM CHLORIDE
     Dosage: 14.9 %, UNK
     Route: 042
     Dates: start: 20140409, end: 20140409
  40. POTASSIUM CHLORIDE. [Concomitant]
     Active Substance: POTASSIUM CHLORIDE
     Dosage: 10 ML, UNK
     Route: 042
     Dates: start: 20140502, end: 20140503
  41. POTASSIUM CHLORIDE. [Concomitant]
     Active Substance: POTASSIUM CHLORIDE
     Dosage: 10 ML, UNK
     Route: 042
     Dates: start: 20140509, end: 20140509
  42. 5-FLUOROURACIL [Suspect]
     Active Substance: FLUOROURACIL
     Indication: ADENOCARCINOMA GASTRIC
     Dosage: 630 MG, UNK
     Route: 040
     Dates: start: 20140304, end: 20140319
  43. CRESTOR [Concomitant]
     Active Substance: ROSUVASTATIN CALCIUM
     Dosage: 10 MG, UNK
     Route: 048
     Dates: start: 20140429, end: 20140505
  44. MAXOLON [Concomitant]
     Active Substance: METOCLOPRAMIDE HYDROCHLORIDE
     Indication: NAUSEA
     Dosage: 10 MG, UNK
     Route: 042
     Dates: start: 20140304, end: 20140306
  45. MAXOLON [Concomitant]
     Active Substance: METOCLOPRAMIDE HYDROCHLORIDE
     Dosage: 10 MG, UNK
     Route: 042
     Dates: start: 20140415, end: 20140417
  46. ASPIRIN. [Concomitant]
     Active Substance: ASPIRIN
     Indication: CORONARY ARTERY DISEASE
     Dosage: 100 MG, UNK
     Route: 048
  47. ZOFRAN [Concomitant]
     Active Substance: ONDANSETRON HYDROCHLORIDE
     Indication: VOMITING
     Dosage: 8 MG, UNK
     Route: 042
     Dates: start: 20140319, end: 20140319
  48. ZOFRAN [Concomitant]
     Active Substance: ONDANSETRON HYDROCHLORIDE
     Dosage: 8 MG, UNK
     Route: 042
     Dates: start: 20140415, end: 20140415
  49. POTASSIUM CHLORIDE. [Concomitant]
     Active Substance: POTASSIUM CHLORIDE
     Indication: HYPOKALAEMIA
     Dosage: 14.9 %, UNK
     Route: 042
     Dates: start: 20140404, end: 20140404
  50. AUGMENTIN [Concomitant]
     Active Substance: AMOXICILLIN\CLAVULANATE POTASSIUM
     Indication: PYREXIA
     Dosage: 1.2 G, UNK
     Route: 042
     Dates: start: 20140502, end: 20140510
  51. OXALIPLATIN. [Suspect]
     Active Substance: OXALIPLATIN
     Indication: ADENOCARCINOMA GASTRIC
     Dosage: 130 MG, UNK
     Route: 042
     Dates: start: 20140304, end: 20140319
  52. 5-FLUOROURACIL [Suspect]
     Active Substance: FLUOROURACIL
     Dosage: 3800 MG, UNK
     Route: 041
     Dates: start: 20140304, end: 20140319
  53. FOLINIC ACID [Suspect]
     Active Substance: LEUCOVORIN
     Dosage: 592 MG, 1 IN 14 D
     Route: 042
     Dates: end: 20140415
  54. TRAMADOL [Concomitant]
     Active Substance: TRAMADOL
     Indication: NEURALGIA
     Dosage: 50 MG, UNK
     Route: 048
     Dates: start: 20140304, end: 20140304
  55. DEXAMETHASONE. [Concomitant]
     Active Substance: DEXAMETHASONE
     Indication: VOMITING
     Dosage: 8 MG, UNK
     Route: 042
     Dates: start: 20140319, end: 20140319
  56. DEXAMETHASONE. [Concomitant]
     Active Substance: DEXAMETHASONE
     Dosage: 8 MG, UNK
     Route: 042
     Dates: start: 20140415, end: 20140415
  57. CHLORAMPHENICOL [Concomitant]
     Active Substance: CHLORAMPHENICOL
     Indication: EYE INFECTION
     Dosage: 1 %, UNK
     Route: 061
     Dates: start: 20140509
  58. MORPHINE [Concomitant]
     Active Substance: MORPHINE
     Indication: PAIN
     Dosage: 8 MG, UNK
     Route: 042
     Dates: start: 20140510

REACTIONS (16)
  - Pallor [Unknown]
  - Shock [Unknown]
  - Upper gastrointestinal haemorrhage [Recovered/Resolved]
  - Abdominal pain [Unknown]
  - Nausea [Not Recovered/Not Resolved]
  - Platelet count decreased [Not Recovered/Not Resolved]
  - Anaemia [Not Recovered/Not Resolved]
  - Vomiting [Not Recovered/Not Resolved]
  - Oedema peripheral [Unknown]
  - Dizziness [Unknown]
  - Hyperglycaemia [Recovered/Resolved]
  - Cardiac neoplasm unspecified [Unknown]
  - Multi-organ failure [Fatal]
  - Malignant neoplasm progression [Fatal]
  - Adenocarcinoma gastric [Fatal]
  - Diarrhoea [Recovered/Resolved]

NARRATIVE: CASE EVENT DATE: 20140324
